FAERS Safety Report 6884265-2 (Version None)
Quarter: 2010Q3

REPORT INFORMATION
  Report Type: 
  Country: None (occurrence: None)
  Receive Date: 20100729
  Receipt Date: 20070604
  Transmission Date: 20110219
  Serious: No
  Sender: FDA-Public Use
  Company Number: US-PFIZER INC-2007046146

PATIENT
  Sex: Female
  Weight: 53 kg

DRUGS (4)
  1. CELEBREX [Suspect]
     Indication: BURSITIS
     Dates: start: 20070101
  2. EVISTA [Concomitant]
  3. ALL OTHER THERAPEUTIC PRODUCTS [Concomitant]
  4. VITAMINS [Concomitant]

REACTIONS (1)
  - DIARRHOEA [None]
